FAERS Safety Report 9119734 (Version 1)
Quarter: 2013Q1

REPORT INFORMATION
  Report Type: Spontaneous
  Country: US (occurrence: US)
  Receive Date: 20130226
  Receipt Date: 20130226
  Transmission Date: 20140127
  Serious: Yes (Other)
  Sender: FDA-Public Use
  Company Number: US-JNJCP-30000089000

PATIENT
  Age: 23 Month
  Sex: Male

DRUGS (2)
  1. AVEENO BABY CALMING COMFORT [Suspect]
     Indication: DRY SKIN PROPHYLAXIS
     Route: 061
  2. AMOXICILLIN [Concomitant]
     Indication: SINUSITIS

REACTIONS (2)
  - Staphylococcal infection [Recovered/Resolved]
  - Abscess bacterial [Recovered/Resolved]
